FAERS Safety Report 8102030-5 (Version None)
Quarter: 2012Q1

REPORT INFORMATION
  Report Type: 
  Country: None (occurrence: None)
  Receive Date: 20120131
  Receipt Date: 20120124
  Transmission Date: 20120608
  Serious: Yes (Other)
  Sender: FDA-Public Use
  Company Number: US-RB-021829-11

PATIENT
  Age: 28 Year
  Sex: Female

DRUGS (1)
  1. SUBOXONE [Suspect]
     Indication: PRODUCT USED FOR UNKNOWN INDICATION
     Dosage: DOSAGE INFORMATION UNKNOWN- SUBLINGUAL FILM
     Route: 065

REACTIONS (8)
  - ANXIETY [None]
  - INSOMNIA [None]
  - MATERNAL EXPOSURE DURING PREGNANCY [None]
  - MUSCLE TWITCHING [None]
  - HALLUCINATION [None]
  - NASOPHARYNGITIS [None]
  - FEELING ABNORMAL [None]
  - PARANOIA [None]
